FAERS Safety Report 6617011-8 (Version None)
Quarter: 2010Q1

REPORT INFORMATION
  Report Type: 
  Country: None (occurrence: None)
  Receive Date: 20100302
  Receipt Date: 20100224
  Transmission Date: 20100710
  Serious: Yes (Death)
  Sender: FDA-Public Use
  Company Number: 2010JP001133

PATIENT
  Age: 14 Year
  Sex: Female

DRUGS (4)
  1. PROGRAF [Suspect]
     Indication: BONE MARROW TRANSPLANT
     Dosage: UNK, UNKNOWN
  2. CYTARABINE [Concomitant]
  3. CYCLOPHOSPHAMIDE [Concomitant]
  4. METHOTREXATE [Concomitant]

REACTIONS (3)
  - CARDIAC ARREST [None]
  - PULMONARY HAEMORRHAGE [None]
  - PULMONARY MYCOSIS [None]
